FAERS Safety Report 7018563-9 (Version None)
Quarter: 2010Q3

REPORT INFORMATION
  Report Type: 
  Country: None (occurrence: None)
  Receive Date: 20100928
  Receipt Date: 20100921
  Transmission Date: 20110219
  Serious: Yes (Other)
  Sender: FDA-Public Use
  Company Number: US-WYE-H17685410

PATIENT
  Sex: Female
  Weight: 81.72 kg

DRUGS (3)
  1. TORISEL [Suspect]
     Indication: RENAL CANCER METASTATIC
     Route: 042
     Dates: start: 20100824
  2. ACETAMINOPHEN AND OXYCODONE HCL [Concomitant]
     Dosage: UNSPECIFIED
  3. ASPIRIN [Concomitant]
     Dosage: UNSPECIFIED

REACTIONS (2)
  - BLOOD CREATININE INCREASED [None]
  - BLOOD UREA INCREASED [None]
